FAERS Safety Report 7593098-3 (Version None)
Quarter: 2011Q3

REPORT INFORMATION
  Report Type: 
  Country: None (occurrence: None)
  Receive Date: 20110706
  Receipt Date: 20110629
  Transmission Date: 20111222
  Serious: Yes (Hospitalization)
  Sender: FDA-Public Use
  Company Number: DE-ROCHE-787270

PATIENT
  Sex: Female
  Weight: 69 kg

DRUGS (2)
  1. PEGINTERFERON ALFA-2A [Suspect]
     Route: 058
     Dates: start: 20110427
  2. RIBAVIRIN [Suspect]
     Route: 048
     Dates: start: 20110427

REACTIONS (1)
  - LYMPHADENOPATHY [None]
